FAERS Safety Report 6795627-6 (Version None)
Quarter: 2010Q2

REPORT INFORMATION
  Report Type: 
  Country: None (occurrence: None)
  Receive Date: 20100625
  Receipt Date: 20100614
  Transmission Date: 20101027
  Serious: Yes (Hospitalization)
  Sender: FDA-Public Use
  Company Number: US-SHIRE-SPV1-2010-01105

PATIENT

DRUGS (5)
  1. IDURSULFASE [Suspect]
     Indication: MUCOPOLYSACCHARIDOSIS II
     Dosage: 6 MG, 1X/WEEK
     Route: 041
     Dates: start: 20100604
  2. BENADRYL [Concomitant]
     Indication: PREMEDICATION
     Dosage: 5 MG, 1X/WEEK
     Route: 042
  3. PARACETAMOL [Concomitant]
     Indication: PREMEDICATION
     Dosage: 80 MG, 1X/WEEK
     Route: 048
  4. HYDROCORTISONE [Concomitant]
     Indication: PREMEDICATION
     Dosage: 12.5 MG, 1X/WEEK
     Route: 042
  5. AMOXICILLIN AND CLAVULANATE POTASSIUM [Concomitant]
     Dosage: 275 MG, 2X/DAY:BID
     Route: 048

REACTIONS (1)
  - CATHETER PLACEMENT [None]
